FAERS Safety Report 4356749-2 (Version None)
Quarter: 2004Q2

REPORT INFORMATION
  Report Type: 
  Country: None (occurrence: None)
  Receive Date: 20040507
  Receipt Date: 20040416
  Transmission Date: 20050107
  Serious: Yes (Other)
  Sender: FDA-Public Use
  Company Number: USA030742672

PATIENT
  Age: 80 Year
  Sex: Female
  Weight: 48 kg

DRUGS (2)
  1. FORTEO [Suspect]
     Indication: OSTEOPOROSIS
     Dosage: 20 UG/3 WEEK
     Dates: start: 20030701
  2. DURAGESIC [Concomitant]

REACTIONS (7)
  - BONE DENSITY DECREASED [None]
  - HEADACHE [None]
  - MALAISE [None]
  - NAUSEA [None]
  - PHARMACEUTICAL PRODUCT COMPLAINT [None]
  - SPINAL COMPRESSION FRACTURE [None]
  - VOMITING [None]
